FAERS Safety Report 9022615 (Version 1)
Quarter: 2013Q1

REPORT INFORMATION
  Report Type: Spontaneous
  Country: US (occurrence: US)
  Receive Date: 20130118
  Receipt Date: 20130118
  Transmission Date: 20140127
  Serious: No
  Sender: FDA-Public Use
  Company Number: US-GLAXOSMITHKLINE-A1001348A

PATIENT
  Age: 64 Year
  Sex: Male

DRUGS (17)
  1. PROMACTA [Suspect]
     Indication: PRODUCT USED FOR UNKNOWN INDICATION
     Dosage: 50MG PER DAY
     Route: 048
  2. SINGULAIR [Concomitant]
  3. LUMIGAN [Concomitant]
  4. ALPHAGAN-P [Concomitant]
  5. PROVENTIL [Concomitant]
  6. FAMCICLOVIR [Concomitant]
  7. ADVAIR [Concomitant]
     Route: 055
  8. METOPROLOL [Concomitant]
  9. KLOR-CON M [Concomitant]
  10. NAFTIN [Concomitant]
  11. TESSALON PEARLS [Concomitant]
  12. LOSARTAN POTASSIUM [Concomitant]
  13. FISH OIL [Concomitant]
  14. VITAMIN D3 [Concomitant]
  15. TUSSIONEX EXTENDED RELEASE [Concomitant]
  16. MAGNESIUM OXIDE [Concomitant]
  17. METFORMIN ER [Concomitant]

REACTIONS (1)
  - Respiratory tract congestion [Unknown]
